FAERS Safety Report 7620569-3 (Version None)
Quarter: 2011Q3

REPORT INFORMATION
  Report Type: 
  Country: None (occurrence: None)
  Receive Date: 20110719
  Receipt Date: 20110706
  Transmission Date: 20111222
  Serious: Yes (Hospitalization)
  Sender: FDA-Public Use
  Company Number: BE-UCBSA-036641

PATIENT
  Sex: Male

DRUGS (1)
  1. CERTOLIZUMAB PEGOL [Suspect]
     Indication: CROHN'S DISEASE
     Dosage: PREVIOUSLY IN STUDY C870-085:400 MG EVERY TWO WEEK,C870-088:400 MG EVERY TWO WEEK FOR INITIAL 3 DOSE
     Route: 058

REACTIONS (1)
  - RENAL COLIC [None]
